FAERS Safety Report 8087179-8 (Version None)
Quarter: 2012Q1

REPORT INFORMATION
  Report Type: 
  Country: None (occurrence: None)
  Receive Date: 20120128
  Receipt Date: 20110415
  Transmission Date: 20120608
  Serious: No
  Sender: FDA-Public Use
  Company Number: US-ABBOTT-11P-163-0719401-00

PATIENT
  Sex: Female

DRUGS (3)
  1. BRODINE [Concomitant]
     Indication: ARTHRITIS
  2. HUMIRA [Suspect]
     Indication: CROHN'S DISEASE
     Dosage: 160MG DAY ONE
     Route: 058
     Dates: start: 20110407
  3. COMBIVENT [Concomitant]
     Indication: ASTHMA
     Route: 055

REACTIONS (2)
  - HERPES ZOSTER [None]
  - INJECTION SITE PAIN [None]
